FAERS Safety Report 20631654 (Version 1)
Quarter: 2022Q1

REPORT INFORMATION
  Report Type: Spontaneous
  Country: FR (occurrence: FR)
  Receive Date: 20220324
  Receipt Date: 20220324
  Transmission Date: 20220424
  Serious: Yes (Death)
  Sender: FDA-Public Use
  Company Number: None

PATIENT
  Age: 59 Year
  Sex: Male
  Weight: 89 kg

DRUGS (14)
  1. DULOXETINE HYDROCHLORIDE [Suspect]
     Active Substance: DULOXETINE HYDROCHLORIDE
     Indication: Product used for unknown indication
     Dosage: DULOXETINE (CHLORHYDRATE DE), UNIT DOSE: 60 MG, FREQUENCY TIME 1 DAY
     Dates: end: 20220128
  2. FUROSEMIDE [Suspect]
     Active Substance: FUROSEMIDE
     Indication: Product used for unknown indication
     Dosage: UNIT DOSE: 20 MG, FREQUENCY TIME :1 DAY
     Route: 048
     Dates: end: 20220130
  3. SIMVASTATIN [Suspect]
     Active Substance: SIMVASTATIN
     Indication: Dyslipidaemia
     Dosage: UNIT DOSE: 20 MG, FREQUENCY TIME : 1DAY
     Route: 048
     Dates: end: 20220131
  4. TACROLIMUS [Suspect]
     Active Substance: TACROLIMUS
     Indication: Heart transplant
     Dosage: UNITT DOSE: 9 MG, FREQUENCY TIME : 1 DAY, DURATION : 4 MONTHS
     Route: 048
     Dates: start: 202110, end: 20220203
  5. TAMSULOSIN [Suspect]
     Active Substance: TAMSULOSIN
     Indication: Product used for unknown indication
     Dosage: UNIT DOSE: 0.4 MG, FREQUENCY TIME :1 DAY
     Route: 048
     Dates: end: 20220130
  6. VALGANCICLOVIR [Suspect]
     Active Substance: VALGANCICLOVIR
     Indication: Antiviral prophylaxis
     Dosage: UNIT DOSE: 450 MG, FREQUENCY TIME : 2 DAYS, DURATION : 1YR
     Route: 048
     Dates: start: 2021, end: 20220130
  7. PREDNISONE [Suspect]
     Active Substance: PREDNISONE
     Indication: Product used for unknown indication
     Dosage: UNIT DOSE: 40 MG, FREQUENCY TIME : 1 DAY, DURATION : 1 YR
     Route: 048
     Dates: start: 2021, end: 20220128
  8. SKENAN [Suspect]
     Active Substance: MORPHINE SULFATE
     Indication: Pain
     Route: 048
     Dates: end: 20220126
  9. CELLCEPT [Suspect]
     Active Substance: MYCOPHENOLATE MOFETIL
     Indication: Heart transplant
     Dosage: STRENGTH : 500 MG, UNIT DOSE: 2 GM, FREQUENCY TIME : 1 DAY, DURATION  3 MONTHS
     Route: 048
     Dates: start: 202110, end: 20220126
  10. ELIQUIS [Suspect]
     Active Substance: APIXABAN
     Indication: Atrial fibrillation
     Dosage: UNIT DOSE: 2 DF, STRENGTH: 2.5 MG, FREQUENCY TIME : 1 TOTAL
     Route: 048
     Dates: end: 20220128
  11. BACTRIM [Suspect]
     Active Substance: SULFAMETHOXAZOLE\TRIMETHOPRIM
     Indication: Prophylaxis
     Dosage: 400/80, UNIT DOSE: 1 DF, FREQUENCY TIME: 1 DAY
     Route: 048
     Dates: start: 2021, end: 20220130
  12. MORPHINE SULFATE [Suspect]
     Active Substance: MORPHINE SULFATE
     Indication: Pain
     Route: 048
     Dates: end: 20220127
  13. PANTOPRAZOLE [Concomitant]
     Active Substance: PANTOPRAZOLE
  14. INSULIN NOS [Concomitant]
     Active Substance: INSULIN NOS

REACTIONS (4)
  - Acute respiratory distress syndrome [Fatal]
  - Leukopenia [Fatal]
  - COVID-19 pneumonia [Fatal]
  - Septic shock [Fatal]

NARRATIVE: CASE EVENT DATE: 20220118
